FAERS Safety Report 25361113 (Version 1)
Quarter: 2025Q2

REPORT INFORMATION
  Report Type: Spontaneous
  Country: US (occurrence: US)
  Receive Date: 20250527
  Receipt Date: 20250527
  Transmission Date: 20250716
  Serious: No
  Sender: CIPLA
  Company Number: US-CIPLA LTD.-2025US06113

PATIENT

DRUGS (8)
  1. ALBUTEROL [Suspect]
     Active Substance: ALBUTEROL
     Indication: Chronic obstructive pulmonary disease
     Route: 065
     Dates: start: 202412
  2. NADOLOL [Concomitant]
     Active Substance: NADOLOL
     Indication: Diabetes mellitus
     Route: 065
     Dates: start: 2021
  3. BASAGLAR [Concomitant]
     Active Substance: INSULIN GLARGINE
     Indication: Diabetes mellitus
     Route: 065
     Dates: start: 2021
  4. GABAPENTIN [Concomitant]
     Active Substance: GABAPENTIN
     Indication: Diabetic neuropathy
     Dosage: 800 MILLIGRAM, TID (FOR 10 YEARS)
     Route: 065
     Dates: start: 2015
  5. METOPROLOL [Concomitant]
     Active Substance: METOPROLOL
     Indication: Hypertension
     Route: 065
     Dates: start: 2009
  6. ATORVASTATIN [Concomitant]
     Active Substance: ATORVASTATIN
     Indication: Blood cholesterol increased
     Dosage: 20 MILLIGRAM, QD (ABOUT A WEEK )
     Route: 065
     Dates: start: 202505
  7. PANTOPRAZOLE [Concomitant]
     Active Substance: PANTOPRAZOLE
     Indication: Product used for unknown indication
     Dosage: 20 MILLIGRAM, QD (FOR 3 YEARS)
     Route: 065
     Dates: start: 2022
  8. PROZAC [Concomitant]
     Active Substance: FLUOXETINE HYDROCHLORIDE
     Indication: Product used for unknown indication
     Dosage: 20 MILLIGRAM, QD
     Route: 065

REACTIONS (3)
  - Incorrect dose administered by device [Unknown]
  - Device delivery system issue [Unknown]
  - Product substitution issue [Unknown]

NARRATIVE: CASE EVENT DATE: 20250512
